FAERS Safety Report 8225877-3 (Version None)
Quarter: 2012Q1

REPORT INFORMATION
  Report Type: 
  Country: None (occurrence: None)
  Receive Date: 20120321
  Receipt Date: 20120210
  Transmission Date: 20120608
  Serious: Yes (Hospitalization, Congenital Anomaly)
  Sender: FDA-Public Use
  Company Number: US-ROCHE-GNE304929

PATIENT
  Sex: Female

DRUGS (4)
  1. ZANTAC [Concomitant]
     Indication: GASTROOESOPHAGEAL REFLUX DISEASE
     Dosage: UNK
  2. LACTULOSE [Concomitant]
     Route: 048
  3. PREVACID [Concomitant]
     Route: 048
  4. OMALIZUMAB [Suspect]
     Indication: PRODUCT USED FOR UNKNOWN INDICATION
     Dosage: LAST DOSE PRIOR TO SAE 20/MAY/2011
     Route: 064
     Dates: start: 20030818

REACTIONS (12)
  - DIARRHOEA [None]
  - SLEEP APNOEA SYNDROME [None]
  - COXSACKIE VIRAL INFECTION [None]
  - ORAL CANDIDIASIS [None]
  - MATERNAL DRUGS AFFECTING FOETUS [None]
  - UPPER RESPIRATORY TRACT INFECTION [None]
  - DEHYDRATION [None]
  - GASTROOESOPHAGEAL REFLUX DISEASE [None]
  - VIRAL INFECTION [None]
  - CROUP INFECTIOUS [None]
  - FAILURE TO THRIVE [None]
  - LARYNGOMALACIA [None]
